FAERS Safety Report 9344255 (Version 2)
Quarter: 2013Q3

REPORT INFORMATION
  Report Type: Spontaneous
  Country: US (occurrence: None)
  Receive Date: 20130610
  Receipt Date: 20130703
  Transmission Date: 20140515
  Serious: No
  Sender: FDA-Public Use
  Company Number: JPI-P-032646

PATIENT
  Age: 54 Year
  Sex: Female

DRUGS (1)
  1. XYREM ?(500 MILLIGRAM/MILLILITERS, SOLUTION)(SODIUM OXYBATE) [Suspect]
     Indication: INSOMNIA
     Dosage: (2.5 GM, 2 IN D
     Route: 048
     Dates: start: 20130313

REACTIONS (1)
  - Limb operation [None]
